FAERS Safety Report 6123104-4 (Version None)
Quarter: 2009Q1

REPORT INFORMATION
  Report Type: 
  Country: None (occurrence: None)
  Receive Date: 20090318
  Receipt Date: 20090309
  Transmission Date: 20090719
  Serious: Yes (Other)
  Sender: FDA-Public Use
  Company Number: US-ABBOTT-09P-163-0561433-00

PATIENT
  Sex: Male

DRUGS (1)
  1. HUMIRA [Suspect]
     Indication: RHEUMATOID ARTHRITIS
     Dates: start: 20070101, end: 20070101

REACTIONS (5)
  - ARTHRALGIA [None]
  - BLINDNESS UNILATERAL [None]
  - HERPES ZOSTER [None]
  - NASAL NEOPLASM [None]
  - PRURITUS [None]
